FAERS Safety Report 18508248 (Version 2)
Quarter: 2020Q4

REPORT INFORMATION
  Report Type: Spontaneous
  Country: JP (occurrence: JP)
  Receive Date: 20201116
  Receipt Date: 20201222
  Transmission Date: 20210114
  Serious: Yes (Death, Other)
  Sender: FDA-Public Use
  Company Number: JP-PURDUE-USA-2020-0177192

PATIENT
  Sex: Male

DRUGS (2)
  1. NORSPAN [Suspect]
     Active Substance: BUPRENORPHINE
     Dosage: 5 MCG, Q1H [STRENGTH 5MG]
     Route: 062
     Dates: end: 20201103
  2. NORSPAN [Suspect]
     Active Substance: BUPRENORPHINE
     Indication: PAIN
     Dosage: 5 MCG, Q1H [STRENGTH 5MG]
     Route: 062

REACTIONS (3)
  - Gastric cancer [Fatal]
  - Neoplasm malignant [Fatal]
  - Drug ineffective [Unknown]

NARRATIVE: CASE EVENT DATE: 20201107
